FAERS Safety Report 15089072 (Version 1)
Quarter: 2018Q3

REPORT INFORMATION
  Report Type: Spontaneous
  Country: US (occurrence: US)
  Receive Date: 20180629
  Receipt Date: 20180629
  Transmission Date: 20181010
  Serious: No
  Sender: FDA-Public Use
  Company Number: US-SA-2018SA168047

PATIENT
  Sex: Female

DRUGS (1)
  1. DULCOLAX PINK [Suspect]
     Active Substance: BISACODYL
     Dosage: UNK
     Dates: start: 20180602

REACTIONS (4)
  - Mood altered [Unknown]
  - Irritability [None]
  - Abnormal faeces [Unknown]
  - Faeces hard [None]
